FAERS Safety Report 6913375-6 (Version None)
Quarter: 2010Q3

REPORT INFORMATION
  Report Type: 
  Country: None (occurrence: None)
  Receive Date: 20100809
  Receipt Date: 20100726
  Transmission Date: 20110219
  Serious: Yes (Other)
  Sender: FDA-Public Use
  Company Number: US-ELI_LILLY_AND_COMPANY-US201005004539

PATIENT
  Sex: Female

DRUGS (4)
  1. FORTEO [Suspect]
     Indication: OSTEOPOROSIS
     Dosage: 20 UG, DAILY (1/D)
     Dates: start: 20090511
  2. AUGMENTIN /00852501/ [Concomitant]
  3. CLEOCIN [Concomitant]
  4. PLETAL [Concomitant]

REACTIONS (2)
  - LOCALISED INFECTION [None]
  - PATHOGEN RESISTANCE [None]
